FAERS Safety Report 9344078 (Version 1)
Quarter: 2013Q2

REPORT INFORMATION
  Report Type: Spontaneous
  Country: JP (occurrence: JP)
  Receive Date: 20130612
  Receipt Date: 20130612
  Transmission Date: 20140414
  Serious: Yes (Other)
  Sender: FDA-Public Use
  Company Number: JP-PFIZER INC-2013168727

PATIENT
  Age: 79 Year
  Sex: Female

DRUGS (4)
  1. CELECOX [Suspect]
     Indication: BACK PAIN
     Dosage: UNK
     Route: 048
  2. IRESSA [Concomitant]
     Indication: NEOPLASM MALIGNANT
     Dosage: UNK
     Route: 048
  3. ZINC [Concomitant]
     Dosage: UNK
  4. OXYCONTIN [Concomitant]
     Indication: BACK PAIN
     Dosage: THREE TIMES DAILY

REACTIONS (4)
  - Decubitus ulcer [Unknown]
  - Paronychia [Unknown]
  - Dry skin [Unknown]
  - Skin exfoliation [Unknown]
